FAERS Safety Report 7157120-0 (Version None)
Quarter: 2010Q4

REPORT INFORMATION
  Report Type: 
  Country: None (occurrence: None)
  Receive Date: 20101214
  Receipt Date: 20100106
  Transmission Date: 20110411
  Serious: No
  Sender: FDA-Public Use
  Company Number: US-ASTRAZENECA-2010SE00498

PATIENT
  Age: 555 Month
  Sex: Female
  Weight: 117.9 kg

DRUGS (7)
  1. CRESTOR [Suspect]
     Route: 048
     Dates: start: 20091201, end: 20091201
  2. WELLBUTRIN [Concomitant]
     Route: 048
  3. DAMPHETAMIN (ADDERALL) [Concomitant]
     Route: 048
  4. EFFEXOR [Concomitant]
     Route: 048
  5. TRIAMTERENE [Concomitant]
     Route: 048
  6. FOLIC ACID [Concomitant]
     Route: 048
  7. LEVOTHYROXINE [Concomitant]
     Route: 048

REACTIONS (2)
  - CRYING [None]
  - SUICIDAL IDEATION [None]
